FAERS Safety Report 6793747-3 (Version None)
Quarter: 2010Q2

REPORT INFORMATION
  Report Type: 
  Country: None (occurrence: None)
  Receive Date: 20100624
  Receipt Date: 20090305
  Transmission Date: 20101027
  Serious: No
  Sender: FDA-Public Use
  Company Number: US-PFIZER INC-2009179027

PATIENT
  Sex: Female
  Weight: 62.6 kg

DRUGS (2)
  1. DEPO-PROVERA [Suspect]
     Indication: CONTRACEPTION
     Dates: end: 20080101
  2. VITAMIN D [Concomitant]
     Indication: BONE DENSITY DECREASED
     Dosage: UNK

REACTIONS (8)
  - AMENORRHOEA [None]
  - BONE PAIN [None]
  - DYSPNOEA [None]
  - GENERAL PHYSICAL CONDITION ABNORMAL [None]
  - MENOPAUSAL SYMPTOMS [None]
  - MENTAL STATUS CHANGES [None]
  - PAIN [None]
  - RASH MACULAR [None]
